FAERS Safety Report 5277220-X (Version None)
Quarter: 2007Q1

REPORT INFORMATION
  Report Type: 
  Country: None (occurrence: None)
  Receive Date: 20070323
  Receipt Date: 20070323
  Transmission Date: 20070707
  Serious: Yes (Other)
  Sender: FDA-Public Use
  Company Number: None

PATIENT
  Sex: Female
  Weight: 74.8435 kg

DRUGS (1)
  1. ISOTRETINOIN ROSCHE [Suspect]
     Dosage: 30 DAYS DAILY
     Dates: start: 20070112, end: 20070312

REACTIONS (1)
  - NO ADVERSE DRUG EFFECT [None]
